FAERS Safety Report 4957791-0 (Version None)
Quarter: 2006Q1

REPORT INFORMATION
  Report Type: 
  Country: None (occurrence: None)
  Receive Date: 20060324
  Receipt Date: 20060317
  Transmission Date: 20060701
  Serious: Yes (Hospitalization)
  Sender: FDA-Public Use
  Company Number: TPA2006A00459

PATIENT
  Sex: Male

DRUGS (2)
  1. ROZEREM [Suspect]
     Dosage: PER ORAL
     Route: 048
  2. PROZAC [Concomitant]

REACTIONS (1)
  - MYOCARDIAL INFARCTION [None]
